FAERS Safety Report 7130279-7 (Version None)
Quarter: 2010Q4

REPORT INFORMATION
  Report Type: 
  Country: None (occurrence: None)
  Receive Date: 20101201
  Receipt Date: 20101126
  Transmission Date: 20110411
  Serious: Yes (Other)
  Sender: FDA-Public Use
  Company Number: PHHY2010CA43363

PATIENT
  Sex: Female

DRUGS (1)
  1. ACLASTA [Suspect]
     Indication: OSTEOPOROSIS
     Dosage: UNK
     Dates: start: 20090710

REACTIONS (7)
  - CONTUSION [None]
  - FALL [None]
  - GASTRIC DISORDER [None]
  - HAEMATOMA [None]
  - HAEMATOMA EVACUATION [None]
  - HAEMORRHAGE [None]
  - UPPER LIMB FRACTURE [None]
